FAERS Safety Report 16829768 (Version 1)
Quarter: 2019Q3

REPORT INFORMATION
  Report Type: Report from Study
  Country: AU (occurrence: AU)
  Receive Date: 20190919
  Receipt Date: 20190919
  Transmission Date: 20191005
  Serious: Yes (Other)
  Sender: FDA-Public Use
  Company Number: PHHY2019AU217124

PATIENT
  Sex: Female

DRUGS (1)
  1. COSENTYX [Suspect]
     Active Substance: SECUKINUMAB
     Indication: PSORIATIC ARTHROPATHY
     Dosage: UNK, QMO
     Route: 058

REACTIONS (10)
  - Basal cell carcinoma [Unknown]
  - Fatigue [Unknown]
  - Therapeutic product effect incomplete [Unknown]
  - Cough [Unknown]
  - Malignant melanoma [Unknown]
  - Depressed mood [Unknown]
  - Osteoporosis [Unknown]
  - Musculoskeletal stiffness [Unknown]
  - Asthma [Unknown]
  - Pain [Unknown]

NARRATIVE: CASE EVENT DATE: 2019
